FAERS Safety Report 5892461-6 (Version None)
Quarter: 2008Q3

REPORT INFORMATION
  Report Type: 
  Country: None (occurrence: None)
  Receive Date: 20080923
  Receipt Date: 20080917
  Transmission Date: 20090109
  Serious: Yes (Hospitalization)
  Sender: FDA-Public Use
  Company Number: DE-JNJFOC-20080903721

PATIENT
  Age: 32 Year
  Sex: Female
  Weight: 63 kg

DRUGS (3)
  1. PALIPERIDONE [Suspect]
     Indication: SCHIZOPHRENIA
     Route: 048
  2. TREVILOR [Concomitant]
     Indication: DEPRESSION
     Route: 048
  3. VALPROATE SODIUM [Concomitant]
     Indication: DEPRESSION
     Route: 048

REACTIONS (2)
  - AGITATION [None]
  - DYSPHORIA [None]
